FAERS Safety Report 8210089-X (Version None)
Quarter: 2012Q1

REPORT INFORMATION
  Report Type: 
  Country: None (occurrence: None)
  Receive Date: 20120314
  Receipt Date: 20120110
  Transmission Date: 20120608
  Serious: No
  Sender: FDA-Public Use
  Company Number: US-ASTRAZENECA-2011SE69719

PATIENT
  Age: 65 Year
  Sex: Male
  Weight: 97.1 kg

DRUGS (10)
  1. PRAVASTATIN SODIUM [Concomitant]
  2. TOPROL-XL [Suspect]
     Indication: HYPERTENSION
     Route: 048
  3. METOPROLOL TARTRATE [Concomitant]
  4. TOPROL-XL [Suspect]
     Route: 048
  5. PLAVIX [Concomitant]
  6. CENTRUM [Concomitant]
  7. METFORMIN HCL [Concomitant]
  8. ALLOPURINOL [Concomitant]
  9. VALIUM [Concomitant]
  10. ASPIRIN [Concomitant]

REACTIONS (3)
  - BLOOD BILIRUBIN INCREASED [None]
  - GLYCOSYLATED HAEMOGLOBIN INCREASED [None]
  - HYPERTENSION [None]
